FAERS Safety Report 6089172-3 (Version None)
Quarter: 2009Q1

REPORT INFORMATION
  Report Type: 
  Country: None (occurrence: None)
  Receive Date: 20090224
  Receipt Date: 20090218
  Transmission Date: 20090719
  Serious: Yes (Hospitalization, Disabling)
  Sender: FDA-Public Use
  Company Number: DK-PFIZER INC-2009169678

PATIENT

DRUGS (15)
  1. ADRIAMYCIN PFS [Suspect]
     Indication: PRECURSOR T-LYMPHOBLASTIC LYMPHOMA/LEUKAEMIA
     Dosage: UNK
     Dates: start: 19980811
  2. ADRIAMYCIN PFS [Suspect]
     Dosage: UNK
     Dates: end: 19981204
  3. SOLU-MEDROL [Suspect]
     Indication: PRECURSOR T-LYMPHOBLASTIC LYMPHOMA/LEUKAEMIA
     Dosage: UNK
     Dates: start: 19990101
  4. METHOTREXATE SODIUM [Suspect]
     Indication: PRECURSOR T-LYMPHOBLASTIC LYMPHOMA/LEUKAEMIA
     Dosage: UNK
     Dates: start: 19980101
  5. METHOTREXATE SODIUM [Suspect]
     Dosage: UNK
     Dates: start: 19990101
  6. ETOPOSIDE [Suspect]
     Indication: PRECURSOR T-LYMPHOBLASTIC LYMPHOMA/LEUKAEMIA
     Dates: end: 19981204
  7. ETOPOSIDE [Suspect]
     Dosage: UNK
     Dates: start: 19990101
  8. CYTARABINE [Suspect]
     Indication: PRECURSOR T-LYMPHOBLASTIC LYMPHOMA/LEUKAEMIA
     Dates: start: 19980811
  9. CYTARABINE [Suspect]
     Dates: end: 19981204
  10. CYTARABINE [Suspect]
     Dosage: UNK
     Dates: start: 19990101
  11. CYCLOPHOSPHAMIDE [Suspect]
     Indication: PRECURSOR T-LYMPHOBLASTIC LYMPHOMA/LEUKAEMIA
     Dosage: UNK
     Dates: start: 19980810, end: 20080204
  12. VINCRISTINE [Suspect]
     Indication: PRECURSOR T-LYMPHOBLASTIC LYMPHOMA/LEUKAEMIA
     Dosage: UNK
     Dates: start: 19980811, end: 19991204
  13. PREDNISONE [Suspect]
     Indication: PRECURSOR T-LYMPHOBLASTIC LYMPHOMA/LEUKAEMIA
     Dosage: UNK
     Dates: start: 19980811
  14. IFOSFAMIDE [Suspect]
     Indication: PRECURSOR T-LYMPHOBLASTIC LYMPHOMA/LEUKAEMIA
     Dosage: UNK
     Dates: end: 19981204
  15. IFOSFAMIDE [Suspect]
     Dosage: UNK
     Dates: start: 19990101

REACTIONS (2)
  - GASTROINTESTINAL NECROSIS [None]
  - OSTEONECROSIS [None]
